FAERS Safety Report 4458614-9 (Version None)
Quarter: 2004Q3

REPORT INFORMATION
  Report Type: 
  Country: None (occurrence: None)
  Receive Date: 20040917
  Receipt Date: 20031229
  Transmission Date: 20050211
  Serious: Yes (Other)
  Sender: FDA-Public Use
  Company Number: US-JNJFOC-20030707447

PATIENT
  Age: 32 Year
  Sex: Female
  Weight: 68.4932 kg

DRUGS (4)
  1. TOPAMAX [Suspect]
     Indication: BIPOLAR DISORDER
     Dosage: 150 MG; 175 MG : 2 IN 1 DAY, ORAL
     Route: 048
  2. PROZAC [Concomitant]
  3. KLONOPIN [Concomitant]
  4. IFA-NOREX (ALL OTHER THERAPEUTIC PRODUCTS) [Concomitant]

REACTIONS (7)
  - BODY TEMPERATURE INCREASED [None]
  - DIARRHOEA [None]
  - FATIGUE [None]
  - FRONTAL LOBE EPILEPSY [None]
  - HYPOTENSION [None]
  - PUPILS UNEQUAL [None]
  - SOMNOLENCE [None]
